FAERS Safety Report 7276478-5 (Version None)
Quarter: 2011Q1

REPORT INFORMATION
  Report Type: 
  Country: None (occurrence: None)
  Receive Date: 20110131
  Receipt Date: 20110118
  Transmission Date: 20110831
  Serious: Yes (Hospitalization)
  Sender: FDA-Public Use
  Company Number: 015495

PATIENT
  Sex: Female
  Weight: 47.8 kg

DRUGS (18)
  1. CIMZIA [Suspect]
     Indication: RHEUMATOID ARTHRITIS
     Dosage: 200 MG  1X/2 WEEKS SUBCUTANEOUS; 200 MG 1X/2 WEEKS SUBCUTANEOUS
     Route: 058
     Dates: start: 20091210, end: 20100707
  2. ATORVASTATIN CALCIUM [Concomitant]
  3. AMPHOTERICIN B [Concomitant]
  4. BUCILLAMINE [Concomitant]
  5. THEOPHYLLINE [Concomitant]
  6. AURANOFIN [Concomitant]
  7. SENNOSIDE [Concomitant]
  8. OLOPATADINE HYDROCHLORIDE [Concomitant]
  9. PREDNISOLONE [Concomitant]
  10. LOXOPROFEN SODIUM [Concomitant]
  11. DIFLUCORTOLONE VALERATE [Concomitant]
  12. SALAZOSULFAPYRIDINE [Concomitant]
  13. FAMOTIDINE [Concomitant]
  14. AZULENE SODIUM SULFONATE [Concomitant]
  15. LIRANAFTATE [Concomitant]
  16. ISONIAZID [Concomitant]
  17. VIDARABINE [Concomitant]
  18. TERBINAFINE HYDROCHLORIDE [Concomitant]

REACTIONS (2)
  - DERMAL CYST [None]
  - BLOOD CHOLESTEROL INCREASED [None]
